FAERS Safety Report 18359880 (Version 1)
Quarter: 2020Q4

REPORT INFORMATION
  Report Type: Spontaneous
  Country: SE (occurrence: SE)
  Receive Date: 20201008
  Receipt Date: 20201008
  Transmission Date: 20210114
  Serious: Yes (Hospitalization)
  Sender: FDA-Public Use
  Company Number: SE-PFIZER INC-2020386474

PATIENT
  Age: 80 Year
  Sex: Female

DRUGS (4)
  1. LESTID [Suspect]
     Active Substance: COLESTIPOL
     Indication: HYPERLIPIDAEMIA
     Dosage: 1 G, DAILY
     Route: 048
     Dates: start: 20200414
  2. FELODIPIN HEXAL [Concomitant]
     Active Substance: FELODIPINE
     Dosage: 10 MG, DAILY
     Dates: start: 20200414
  3. METFORMIN ACTAVIS [Concomitant]
     Active Substance: METFORMIN HYDROCHLORIDE
     Dosage: 1000 MG, DAILY
     Dates: start: 20180823
  4. LEVAXIN [Interacting]
     Active Substance: LEVOTHYROXINE SODIUM
     Indication: HYPOTHYROIDISM
     Dosage: 75/100 MICROGRAM, ALTERNATE DAY

REACTIONS (3)
  - Condition aggravated [Recovering/Resolving]
  - Blood thyroid stimulating hormone increased [Recovered/Resolved]
  - Drug interaction [Recovering/Resolving]

NARRATIVE: CASE EVENT DATE: 20200501
